FAERS Safety Report 4627632-X (Version None)
Quarter: 2005Q2

REPORT INFORMATION
  Report Type: 
  Country: None (occurrence: None)
  Receive Date: 20050401
  Receipt Date: 20050323
  Transmission Date: 20051028
  Serious: Yes (Death, Other)
  Sender: FDA-Public Use
  Company Number: 2005049181

PATIENT
  Age: 44 Year
  Sex: Male
  Weight: 112.4921 kg

DRUGS (7)
  1. NEURONTIN (GABAPENTIN) [Suspect]
     Indication: FIBROMYALGIA
     Dosage: 1 IN 1 D, ORAL
     Route: 048
     Dates: start: 20030101, end: 20040101
  2. NEURONTIN (GABAPENTIN) [Suspect]
     Indication: PAIN PROPHYLAXIS
     Dosage: 1 IN 1 D, ORAL
     Route: 048
     Dates: start: 20030101, end: 20040101
  3. NEURONTIN (GABAPENTIN) [Suspect]
     Indication: RESTLESS LEGS SYNDROME
     Dosage: 1 IN 1 D, ORAL
     Route: 048
     Dates: start: 20030101, end: 20040101
  4. OXYCODONE (OXYCODONE) [Suspect]
     Indication: ILL-DEFINED DISORDER
     Dates: end: 20040101
  5. OXYCONTIN [Suspect]
     Indication: ILL-DEFINED DISORDER
     Dates: end: 20040101
  6. EFFEXOR [Suspect]
     Indication: ILL-DEFINED DISORDER
     Dates: end: 20040101
  7. ALPRAZOLAM [Concomitant]

REACTIONS (9)
  - ACCIDENTAL DEATH [None]
  - CIRCULATORY COLLAPSE [None]
  - CONFUSIONAL STATE [None]
  - DRUG TOXICITY [None]
  - HEPATIC STEATOSIS [None]
  - HYPOTONIA [None]
  - LUNG DISORDER [None]
  - UNEVALUABLE EVENT [None]
  - VISION BLURRED [None]
